FAERS Safety Report 8433368 (Version 2)
Quarter: 2013Q2

REPORT INFORMATION
  Report Type: Spontaneous
  Country: ES (occurrence: ES)
  Receive Date: 20120229
  Receipt Date: 20130605
  Transmission Date: 20140414
  Serious: Yes (Life-Threatening, Hospitalization, Disabling, Other)
  Sender: FDA-Public Use
  Company Number: ES-ABBOTT-12P-144-0905282-00

PATIENT
  Age: 50 Year
  Sex: Female

DRUGS (5)
  1. HUMIRA 40 MG/ 0.8 ML PRE-FILLED SYRINGE [Suspect]
     Indication: RHEUMATOID ARTHRITIS
     Route: 058
     Dates: start: 200912, end: 201101
  2. MTX [Concomitant]
     Indication: RHEUMATOID ARTHRITIS
     Dates: start: 2009, end: 201101
  3. NSAID^S [Concomitant]
     Indication: RHEUMATOID ARTHRITIS
  4. PREDNISONA [Concomitant]
     Indication: RHEUMATOID ARTHRITIS
     Route: 048
  5. DACORTIN [Concomitant]
     Indication: RHEUMATOID ARTHRITIS

REACTIONS (14)
  - Guillain-Barre syndrome [Recovered/Resolved with Sequelae]
  - Respiratory failure [Unknown]
  - Muscular weakness [Unknown]
  - Quadriplegia [Unknown]
  - Dysarthria [Recovered/Resolved]
  - Ophthalmoplegia [Recovered/Resolved]
  - Neurological symptom [Unknown]
  - Diplegia [Recovered/Resolved]
  - Areflexia [Unknown]
  - Paralysis flaccid [Unknown]
  - Respiratory acidosis [Unknown]
  - Pain in extremity [Unknown]
  - Campylobacter infection [Recovered/Resolved]
  - Urinary tract infection enterococcal [Unknown]
